FAERS Safety Report 20631139 (Version 1)
Quarter: 2022Q1

REPORT INFORMATION
  Report Type: Spontaneous
  Country: US (occurrence: None)
  Receive Date: 20220323
  Receipt Date: 20220323
  Transmission Date: 20220424
  Serious: Yes (Other)
  Sender: FDA-Public Use
  Company Number: None

PATIENT
  Sex: Female

DRUGS (1)
  1. STELARA [Suspect]
     Active Substance: USTEKINUMAB
     Indication: Psoriatic arthropathy
     Dosage: OTHER FREQUENCY : EVERY 84 DAYS;?OTHER ROUTE : UNDER SKIN;?
     Route: 050

REACTIONS (3)
  - Drug ineffective [None]
  - Visual impairment [None]
  - Thinking abnormal [None]
